FAERS Safety Report 26143404 (Version 2)
Quarter: 2025Q4

REPORT INFORMATION
  Report Type: Spontaneous
  Country: US (occurrence: US)
  Receive Date: 20251211
  Receipt Date: 20251226
  Transmission Date: 20260118
  Serious: Yes (Life-Threatening, Other)
  Sender: GC Biopharma
  Company Number: US-GC BIOPHARMA-US-2025-GCBP-00051

PATIENT
  Age: 78 Year
  Sex: Female

DRUGS (4)
  1. ALYGLO [Suspect]
     Active Substance: HUMAN IMMUNOGLOBULIN G-STWK
     Indication: Chronic lymphocytic leukaemia
     Dosage: 20 GRAM, VIAL
     Route: 042
     Dates: start: 20251124, end: 20251124
  2. ALYGLO [Suspect]
     Active Substance: HUMAN IMMUNOGLOBULIN G-STWK
     Indication: Hypogammaglobulinaemia
     Dosage: 20 GRAM, VIAL
     Route: 042
     Dates: start: 20251124, end: 20251124
  3. ALYGLO [Suspect]
     Active Substance: HUMAN IMMUNOGLOBULIN G-STWK
     Dosage: 10 GRAMX8/10, 2G WASTE VIAL
     Route: 042
     Dates: start: 20251124, end: 20251124
  4. ALYGLO [Suspect]
     Active Substance: HUMAN IMMUNOGLOBULIN G-STWK
     Dosage: UNK, UNK
     Route: 042
     Dates: start: 20250612

REACTIONS (6)
  - Blood pressure decreased [Recovered/Resolved]
  - Anaphylactic shock [Recovered/Resolved]
  - Urticaria [Recovered/Resolved]
  - Dizziness [Recovered/Resolved]
  - Nausea [Recovered/Resolved]
  - Off label use [Unknown]

NARRATIVE: CASE EVENT DATE: 20250612
